FAERS Safety Report 7628998-9 (Version None)
Quarter: 2011Q3

REPORT INFORMATION
  Report Type: 
  Country: None (occurrence: None)
  Receive Date: 20110715
  Receipt Date: 20110706
  Transmission Date: 20111222
  Serious: Yes (Hospitalization)
  Sender: FDA-Public Use
  Company Number: 2011S1000997

PATIENT
  Age: 51 Year
  Sex: Male
  Weight: 80.5 kg

DRUGS (4)
  1. NORVASC [Concomitant]
  2. OLMESARTAN MEDOXOMIL [Suspect]
     Indication: HYPERTENSION
     Dosage: 10 MG; 1X; PO
     Route: 048
     Dates: start: 20110304, end: 20110615
  3. GLYCORAN [Concomitant]
  4. LIVALO [Suspect]
     Indication: HYPERCHOLESTEROLAEMIA
     Dosage: 1 MG; 1X; PO
     Route: 048
     Dates: start: 20090520, end: 20110518

REACTIONS (3)
  - RENAL IMPAIRMENT [None]
  - RHABDOMYOLYSIS [None]
  - HEPATIC FUNCTION ABNORMAL [None]
